FAERS Safety Report 23885685 (Version 1)
Quarter: 2024Q2

REPORT INFORMATION
  Report Type: Spontaneous
  Country: US (occurrence: US)
  Receive Date: 20240522
  Receipt Date: 20240522
  Transmission Date: 20240716
  Serious: No
  Sender: FDA-Public Use
  Company Number: US-PFIZER INC-202400173216

PATIENT
  Age: 86 Year
  Sex: Female

DRUGS (1)
  1. IBRANCE [Suspect]
     Active Substance: PALBOCICLIB
     Dosage: 100 MG, CYCLIC (1 A DAY FOR 3 WEEKS AND THEN HAS A WEEK OFF)

REACTIONS (3)
  - Arthritis [Unknown]
  - Pain in extremity [Unknown]
  - Peripheral coldness [Unknown]
